FAERS Safety Report 14293059 (Version 1)
Quarter: 2017Q4

REPORT INFORMATION
  Report Type: Spontaneous
  Country: NO (occurrence: NO)
  Receive Date: 20171215
  Receipt Date: 20171215
  Transmission Date: 20180321
  Serious: Yes (Hospitalization, Disabling)
  Sender: FDA-Public Use
  Company Number: NO-PFIZER INC-2017529588

PATIENT
  Age: 63 Year
  Sex: Male

DRUGS (15)
  1. ACETYLSALICYLIC ACID ACTAVIS ENTEROTABLETS [Concomitant]
  2. CLOPIDOGREL [Concomitant]
     Active Substance: CLOPIDOGREL BISULFATE
  3. BISOPROLOL SANDOZ [Concomitant]
     Active Substance: BISOPROLOL
  4. VESICARE [Concomitant]
     Active Substance: SOLIFENACIN SUCCINATE
  5. AMARYL [Concomitant]
     Active Substance: GLIMEPIRIDE
  6. FUROSEMIDE. [Concomitant]
     Active Substance: FUROSEMIDE
  7. HIPREX [Concomitant]
     Active Substance: METHENAMINE HIPPURATE
  8. SPIRONOLACTONE ORION [Concomitant]
     Active Substance: SPIRONOLACTONE
  9. ZOPIKLON [Concomitant]
     Active Substance: ZOPICLONE
  10. FLAGYL [Suspect]
     Active Substance: METRONIDAZOLE\METRONIDAZOLE HYDROCHLORIDE
  11. ESCITALOPRAM [Concomitant]
     Active Substance: ESCITALOPRAM OXALATE
  12. NEURONTIN [Suspect]
     Active Substance: GABAPENTIN
     Indication: NEURALGIA
     Dosage: 900 MG, DAILY
     Dates: start: 20141105, end: 20170324
  13. RAMIPRIL ACTAVIS [Concomitant]
     Active Substance: RAMIPRIL
  14. MALFIN [Concomitant]
     Active Substance: MORPHINE SULFATE
  15. MIANSERIN MYLAN [Concomitant]
     Active Substance: MIANSERIN

REACTIONS (10)
  - Drug ineffective [Unknown]
  - Myoclonus [Unknown]
  - Amnesia [Unknown]
  - Somnolence [Unknown]
  - Neuropathy peripheral [Unknown]
  - Fatigue [Unknown]
  - Tremor [Unknown]
  - Hypokinesia [Unknown]
  - Condition aggravated [Unknown]
  - Muscle atrophy [Unknown]

NARRATIVE: CASE EVENT DATE: 2014
